FAERS Safety Report 7093572-2 (Version None)
Quarter: 2010Q4

REPORT INFORMATION
  Report Type: 
  Country: None (occurrence: None)
  Receive Date: 20101110
  Receipt Date: 20101102
  Transmission Date: 20110411
  Serious: Yes (Death)
  Sender: FDA-Public Use
  Company Number: GB-ROCHE-712542

PATIENT
  Sex: Male
  Weight: 65 kg

DRUGS (3)
  1. XELODA [Suspect]
     Indication: GASTROOESOPHAGEAL CANCER
     Route: 048
     Dates: start: 20100219, end: 20100324
  2. EPIRUBICIN [Suspect]
     Indication: GASTROOESOPHAGEAL CANCER
     Route: 042
     Dates: start: 20100219, end: 20100319
  3. CISPLATIN [Suspect]
     Indication: GASTROOESOPHAGEAL CANCER
     Route: 042
     Dates: start: 20100219, end: 20100319

REACTIONS (12)
  - ARTERIOSCLEROSIS CORONARY ARTERY [None]
  - ASPERGILLOSIS [None]
  - CARDIO-RESPIRATORY ARREST [None]
  - DIARRHOEA [None]
  - DYSPHAGIA [None]
  - GASTRIC CANCER [None]
  - ILEAL ULCER [None]
  - JEJUNAL ULCER [None]
  - LETHARGY [None]
  - LEUKOPENIA [None]
  - MALIGNANT NEOPLASM PROGRESSION [None]
  - NEUTROPENIA [None]
